FAERS Safety Report 5837174-1 (Version None)
Quarter: 2008Q3

REPORT INFORMATION
  Report Type: 
  Country: None (occurrence: None)
  Receive Date: 20080807
  Receipt Date: 20080728
  Transmission Date: 20090109
  Serious: Yes (Hospitalization)
  Sender: FDA-Public Use
  Company Number: JP-EISAI MEDIAL RESEARCH-E3810-02050-SPO-JP

PATIENT
  Age: 38 Year
  Sex: Male
  Weight: 76 kg

DRUGS (3)
  1. RABEPRAZOLE SODIUM [Suspect]
     Indication: HELICOBACTER INFECTION
     Route: 048
     Dates: start: 20080517, end: 20080521
  2. AMOXICILLIN TRIHYDRATE [Suspect]
     Indication: HELICOBACTER INFECTION
     Route: 048
     Dates: start: 20080517, end: 20080521
  3. FLAGYL [Concomitant]
     Indication: HELICOBACTER INFECTION
     Route: 048
     Dates: start: 20080517, end: 20080521

REACTIONS (1)
  - ENTEROCOLITIS HAEMORRHAGIC [None]
